FAERS Safety Report 14653950 (Version 4)
Quarter: 2018Q4

REPORT INFORMATION
  Report Type: Spontaneous
  Country: US (occurrence: US)
  Receive Date: 20180319
  Receipt Date: 20181120
  Transmission Date: 20190204
  Serious: No
  Sender: FDA-Public Use
  Company Number: US-PFIZER INC-2018112262

PATIENT
  Age: 54 Year
  Sex: Female
  Weight: 93.89 kg

DRUGS (1)
  1. LYRICA [Suspect]
     Active Substance: PREGABALIN
     Indication: DIABETIC NEUROPATHY
     Dosage: 150 MG, 3X/DAY
     Route: 048
     Dates: end: 201810

REACTIONS (3)
  - Pain [Not Recovered/Not Resolved]
  - Prescribed overdose [Unknown]
  - Feeling abnormal [Unknown]
